FAERS Safety Report 13558660 (Version 2)
Quarter: 2017Q2

REPORT INFORMATION
  Report Type: Report from Study
  Country: JP (occurrence: JP)
  Receive Date: 20170518
  Receipt Date: 20170620
  Transmission Date: 20170830
  Serious: Yes (Other)
  Sender: FDA-Public Use
  Company Number: JP-ALXN-A201701035AA

PATIENT
  Age: 1 Year
  Sex: Female
  Weight: 8.04 kg

DRUGS (2)
  1. VITAMIN D [Concomitant]
     Active Substance: CHOLECALCIFEROL
     Indication: HYPOPHOSPHATASIA
     Dosage: 160 IU, QD
     Route: 048
     Dates: start: 20160325
  2. STRENSIQ [Suspect]
     Active Substance: ASFOTASE ALFA
     Indication: HYPOPHOSPHATASIA
     Dosage: 2 MG/KG, TIW
     Route: 058
     Dates: start: 20141029

REACTIONS (8)
  - Hypothyroidism [Recovering/Resolving]
  - Genital haemorrhage [Recovered/Resolved]
  - Eczema asteatotic [Recovered/Resolved]
  - Dermatitis [Recovered/Resolved]
  - Neurogenic bladder [Recovering/Resolving]
  - Dermatitis [Recovered/Resolved]
  - Dermatitis [Recovered/Resolved]
  - Bronchitis [Recovered/Resolved]

NARRATIVE: CASE EVENT DATE: 20160406
